FAERS Safety Report 4905971-2 (Version None)
Quarter: 2006Q1

REPORT INFORMATION
  Report Type: 
  Country: None (occurrence: None)
  Receive Date: 20060206
  Receipt Date: 20060126
  Transmission Date: 20060701
  Serious: Yes (Other)
  Sender: FDA-Public Use
  Company Number: 2006013693

PATIENT
  Age: 83 Year
  Sex: Male
  Weight: 79.3795 kg

DRUGS (4)
  1. CELEBREX [Suspect]
     Indication: ARTHRITIS
     Dosage: 200 MG (200 MG, 1 IN 1 D), ORAL
     Route: 048
     Dates: start: 19990101
  2. LISINOPRIL [Concomitant]
  3. DEPAKOTE [Concomitant]
  4. ACETAMINOPHEN [Concomitant]

REACTIONS (2)
  - AORTIC VALVE DISEASE [None]
  - OEDEMA [None]
